FAERS Safety Report 16470886 (Version 3)
Quarter: 2019Q3

REPORT INFORMATION
  Report Type: Spontaneous
  Country: DE (occurrence: DE)
  Receive Date: 20190624
  Receipt Date: 20190722
  Transmission Date: 20191004
  Serious: Yes (Death, Life-Threatening, Hospitalization)
  Sender: FDA-Public Use
  Company Number: DE-ELI_LILLY_AND_COMPANY-DE201906008682

PATIENT
  Age: 67 Year
  Sex: Female

DRUGS (8)
  1. OLUMIANT [Suspect]
     Active Substance: BARICITINIB
     Indication: RHEUMATOID ARTHRITIS
     Dosage: 4 MG, DAILY
     Route: 048
     Dates: start: 20190413, end: 20190427
  2. DEKRISTOL [Concomitant]
     Active Substance: CHOLECALCIFEROL
     Indication: PRODUCT USED FOR UNKNOWN INDICATION
     Dosage: 20.000 INTERNATIONAL UNIT, WEEKLY (1/W)
     Route: 065
  3. ETORICOXIB. [Concomitant]
     Active Substance: ETORICOXIB
     Indication: PRODUCT USED FOR UNKNOWN INDICATION
     Dosage: 90 MG, PRN
     Route: 065
  4. CALCIUM [Concomitant]
     Active Substance: CALCIUM
     Indication: PRODUCT USED FOR UNKNOWN INDICATION
     Dosage: 1000 MG, EACH MORNING
     Route: 065
  5. PANTOZOL [Concomitant]
     Active Substance: PANTOPRAZOLE SODIUM
     Indication: PRODUCT USED FOR UNKNOWN INDICATION
     Dosage: 20 MG, EACH MORNING
     Route: 065
  6. PREDNISOLON ^DLF^ [Concomitant]
     Active Substance: PREDNISOLONE
     Indication: PRODUCT USED FOR UNKNOWN INDICATION
     Dosage: 1 MG, DAILY
     Route: 065
  7. ROACTEMRA [Concomitant]
     Active Substance: TOCILIZUMAB
     Indication: PRODUCT USED FOR UNKNOWN INDICATION
     Dosage: 162 MG, WEEKLY (1/W)
     Route: 065
  8. OLMESARTAN MEDOXOMIL, AMLODIPINE AND HYDROCHL [Concomitant]
     Active Substance: AMLODIPINE\HYDROCHLOROTHIAZIDE\OLMESARTAN
     Indication: PRODUCT USED FOR UNKNOWN INDICATION
     Dosage: 40/10/25 MG EACH  MORNING
     Route: 065

REACTIONS (25)
  - Pleural effusion [Unknown]
  - Multiple organ dysfunction syndrome [Fatal]
  - Beta haemolytic streptococcal infection [Unknown]
  - Disseminated intravascular coagulation [Unknown]
  - Cellulitis [Unknown]
  - Hypoglycaemia [Unknown]
  - Atelectasis [Unknown]
  - Hypoalbuminaemia [Unknown]
  - Cardiopulmonary failure [Unknown]
  - Respiratory failure [Unknown]
  - Acute hepatic failure [Unknown]
  - Lactic acidosis [Unknown]
  - Pericardial fibrosis [Unknown]
  - Pharyngitis [Unknown]
  - Toxic shock syndrome [Unknown]
  - Cardiomyopathy [Unknown]
  - Septic shock [Fatal]
  - Acute kidney injury [Unknown]
  - Cardiovascular insufficiency [Unknown]
  - Myoglobinaemia [Unknown]
  - Hypervolaemia [Unknown]
  - Anaemia [Unknown]
  - Acute sinusitis [Unknown]
  - Haemodynamic instability [Fatal]
  - Lung infiltration [Unknown]

NARRATIVE: CASE EVENT DATE: 20190420
